FAERS Safety Report 17390482 (Version 2)
Quarter: 2020Q1

REPORT INFORMATION
  Report Type: Spontaneous
  Country: RO (occurrence: RO)
  Receive Date: 20200207
  Receipt Date: 20200218
  Transmission Date: 20200409
  Serious: Yes (Other)
  Sender: FDA-Public Use
  Company Number: RO-SUN PHARMACEUTICAL INDUSTRIES LTD-2020RR-235868

PATIENT
  Age: 45 Year
  Sex: Female

DRUGS (2)
  1. GABARAN [Suspect]
     Active Substance: GABAPENTIN
     Indication: NEURALGIA
     Dosage: 800 MILLIGRAM, DAILY
     Route: 065
  2. GABARAN [Suspect]
     Active Substance: GABAPENTIN
     Indication: NEURALGIA
     Dosage: 1600 MILLIGRAM, EVERY EVENING
     Route: 065

REACTIONS (1)
  - Pemphigus [Unknown]
